FAERS Safety Report 9307238 (Version 2)
Quarter: 2013Q2

REPORT INFORMATION
  Report Type: Report from Study
  Country: US (occurrence: US)
  Receive Date: 20130524
  Receipt Date: 20130531
  Transmission Date: 20140414
  Serious: Yes (Hospitalization)
  Sender: FDA-Public Use
  Company Number: US-SHIRE-ALL1-2013-03206

PATIENT
  Age: 43 Year
  Sex: Male
  Weight: 68.3 kg

DRUGS (3)
  1. 489 (LISDEXAMFETAMINE DIMESYLATE) [Suspect]
     Indication: MAJOR DEPRESSION
     Dosage: 70 MG, 1X/DAY:QD
     Route: 048
     Dates: start: 20121018, end: 20130429
  2. SERTRALINE HYDROCHLORIDE [Suspect]
     Indication: MAJOR DEPRESSION
     Dosage: 200 MG, 1X/DAY:QD
     Route: 065
     Dates: start: 20130408, end: 20130520
  3. SERTRALINE HYDROCHLORIDE [Suspect]
     Dosage: 150 MG, 1X/DAY:QD
     Route: 065
     Dates: start: 20121018, end: 20130407

REACTIONS (1)
  - Suicide attempt [Recovered/Resolved]
